FAERS Safety Report 4971829-6 (Version None)
Quarter: 2006Q2

REPORT INFORMATION
  Report Type: 
  Country: None (occurrence: None)
  Receive Date: 20060407
  Receipt Date: 20060330
  Transmission Date: 20061013
  Serious: Yes (Other)
  Sender: FDA-Public Use
  Company Number: 2006044724

PATIENT
  Age: 51 Year
  Sex: Female
  Weight: 86.1834 kg

DRUGS (7)
  1. NEURONTIN [Suspect]
     Indication: NEURALGIA
  2. PAXIL [Suspect]
     Indication: ILL-DEFINED DISORDER
  3. SOMA [Concomitant]
  4. VICODIN [Concomitant]
  5. TOPROL-XL [Concomitant]
  6. PRAVACHOL [Concomitant]
  7. AMBIEN [Concomitant]

REACTIONS (9)
  - ABASIA [None]
  - BALANCE DISORDER [None]
  - CONDITION AGGRAVATED [None]
  - HYPOAESTHESIA [None]
  - LIMB DISCOMFORT [None]
  - PARAESTHESIA [None]
  - PARAESTHESIA ORAL [None]
  - RASH [None]
  - SURGERY [None]
